FAERS Safety Report 23790552 (Version 1)
Quarter: 2024Q2

REPORT INFORMATION
  Report Type: Spontaneous
  Country: CN (occurrence: CN)
  Receive Date: 20240427
  Receipt Date: 20240427
  Transmission Date: 20240715
  Serious: Yes (Hospitalization, Other)
  Sender: FDA-Public Use
  Company Number: CN-NOVITIUMPHARMA-2024CNNVP00589

PATIENT
  Age: 68 Year
  Sex: Female

DRUGS (4)
  1. LEVOFLOXACIN [Suspect]
     Active Substance: LEVOFLOXACIN
     Indication: Herpes zoster
  2. CARBAMAZEPINE [Suspect]
     Active Substance: CARBAMAZEPINE
     Indication: Post herpetic neuralgia
  3. EBASTINE [Concomitant]
     Active Substance: EBASTINE
     Indication: Herpes zoster
  4. METHYLPREDNISOLONE [Concomitant]
     Active Substance: METHYLPREDNISOLONE
     Indication: Acute generalised exanthematous pustulosis

REACTIONS (1)
  - AGEP-DRESS overlap [Unknown]
